FAERS Safety Report 11323550 (Version 1)
Quarter: 2015Q3

REPORT INFORMATION
  Report Type: Spontaneous
  Country: US (occurrence: None)
  Receive Date: 20150729
  Receipt Date: 20150729
  Transmission Date: 20151125
  Serious: Yes (Other)
  Sender: FDA-Public Use
  Company Number: None

PATIENT
  Age: 42 Year
  Sex: Female
  Weight: 109.77 kg

DRUGS (3)
  1. CYMBALTA [Concomitant]
     Active Substance: DULOXETINE HYDROCHLORIDE
  2. NUVARING [Suspect]
     Active Substance: ETHINYL ESTRADIOL\ETONOGESTREL
     Indication: MUSCLE SPASMS
     Dosage: 1 RING PER MONTH, MONTHLY, VAGINAL
     Route: 067
     Dates: start: 20150605, end: 20150728
  3. NUVARING [Suspect]
     Active Substance: ETHINYL ESTRADIOL\ETONOGESTREL
     Indication: MENORRHAGIA
     Dosage: 1 RING PER MONTH, MONTHLY, VAGINAL
     Route: 067
     Dates: start: 20150605, end: 20150728

REACTIONS (1)
  - Thrombosis [None]

NARRATIVE: CASE EVENT DATE: 20150728
